FAERS Safety Report 5067703-X (Version None)
Quarter: 2006Q3

REPORT INFORMATION
  Report Type: 
  Country: None (occurrence: None)
  Receive Date: 20060728
  Receipt Date: 20060711
  Transmission Date: 20061208
  Serious: Yes (Hospitalization)
  Sender: FDA-Public Use
  Company Number: FR200512004215

PATIENT
  Age: 70 Year
  Sex: Female

DRUGS (6)
  1. FORTEO [Suspect]
     Indication: OSTEOPOROSIS
     Dosage: 20 UG DAILY (1/D)
     Route: 058
     Dates: start: 20050325, end: 20051105
  2. FORTEO [Suspect]
     Indication: OSTEOPOROSIS
     Dosage: 20 UG DAILY (1/D)
     Route: 058
     Dates: start: 20051226, end: 20060707
  3. FORTEO PEN (FORTEO PEN) [Concomitant]
  4. NEO-MERCAZOLE TAB [Concomitant]
  5. ASPIRIN [Concomitant]
  6. ACETAMINOPHEN W/ PROPOXYPHENE HCL [Concomitant]

REACTIONS (4)
  - BASEDOW'S DISEASE [None]
  - CONDITION AGGRAVATED [None]
  - HYPERCALCAEMIA [None]
  - VITAMIN D DECREASED [None]
